FAERS Safety Report 8325617-3 (Version None)
Quarter: 2012Q2

REPORT INFORMATION
  Report Type: 
  Country: None (occurrence: None)
  Receive Date: 20120501
  Receipt Date: 20100517
  Transmission Date: 20120825
  Serious: No
  Sender: FDA-Public Use
  Company Number: US-TEVA-2010002770

PATIENT
  Sex: Male
  Weight: 74.91 kg

DRUGS (2)
  1. RITALIN [Concomitant]
     Dates: end: 20100401
  2. NUVIGIL [Suspect]
     Indication: SOMNOLENCE
     Route: 048
     Dates: start: 20100201

REACTIONS (5)
  - MEMORY IMPAIRMENT [None]
  - DAYDREAMING [None]
  - INTENTIONAL DRUG MISUSE [None]
  - DRUG INEFFECTIVE FOR UNAPPROVED INDICATION [None]
  - SOMNOLENCE [None]
